FAERS Safety Report 23468538 (Version 2)
Quarter: 2024Q1

REPORT INFORMATION
  Report Type: Report from Study
  Country: DE (occurrence: DE)
  Receive Date: 20240202
  Receipt Date: 20240301
  Transmission Date: 20240409
  Serious: Yes (Hospitalization)
  Sender: FDA-Public Use
  Company Number: DE-BEH-2024167780

PATIENT
  Age: 39 Year
  Sex: Female
  Weight: 47 kg

DRUGS (5)
  1. HAEMOCOMPLETTAN P [Suspect]
     Active Substance: FIBRINOGEN HUMAN
     Indication: Factor I deficiency
     Dosage: 2 GRAM EVERY 10 DAYS
     Route: 042
  2. HAEMOCOMPLETTAN P [Suspect]
     Active Substance: FIBRINOGEN HUMAN
     Dosage: 2 GRAM, SINGLE
     Route: 042
     Dates: start: 20231229
  3. HAEMOCOMPLETTAN P [Suspect]
     Active Substance: FIBRINOGEN HUMAN
     Dosage: 2 GRAM EVERY 10 DAYS
     Route: 042
  4. HAEMOCOMPLETTAN P [Suspect]
     Active Substance: FIBRINOGEN HUMAN
     Dosage: 2 GRAM, TOT
     Route: 042
     Dates: start: 20240121, end: 20240121
  5. ASPIRIN [Concomitant]
     Active Substance: ASPIRIN
     Dosage: UNK
     Dates: start: 20240105

REACTIONS (10)
  - Vertebrobasilar artery dissection [Unknown]
  - Cerebrovascular accident [Unknown]
  - Hemihypoaesthesia [Unknown]
  - Cerebral ischaemia [Unknown]
  - Central nervous system lesion [Unknown]
  - Cerebral infarction [Unknown]
  - Dizziness [Unknown]
  - Gait disturbance [Unknown]
  - Diplopia [Unknown]
  - Sensory disturbance [Unknown]

NARRATIVE: CASE EVENT DATE: 20240113
